FAERS Safety Report 8917785 (Version 3)
Quarter: 2012Q4

REPORT INFORMATION
  Report Type: 
  Country: US (occurrence: US)
  Receive Date: 20121120
  Receipt Date: 20121221
  Transmission Date: 20130627
  Serious: Yes (Hospitalization, Other)
  Sender: FDA-Public Use
  Company Number: US-GILEAD-2012-0064898

PATIENT
  Sex: Male

DRUGS (1)
  1. LETAIRIS [Suspect]
     Indication: COR PULMONALE CHRONIC
     Dosage: 10 mg, QD
     Route: 048
     Dates: start: 20110829

REACTIONS (3)
  - Hypoxia [Recovered/Resolved]
  - Bedridden [Unknown]
  - Dyspnoea [Unknown]
